FAERS Safety Report 24613842 (Version 2)
Quarter: 2024Q4

REPORT INFORMATION
  Report Type: Spontaneous
  Country: ID (occurrence: ID)
  Receive Date: 20241113
  Receipt Date: 20241125
  Transmission Date: 20250115
  Serious: Yes (Other)
  Sender: TEVA
  Company Number: ID-TEVA-VS-3262201

PATIENT
  Age: 55 Year

DRUGS (1)
  1. PACLITAXEL [Suspect]
     Active Substance: PACLITAXEL
     Indication: Coronary artery occlusion
     Route: 065

REACTIONS (1)
  - Coronary artery aneurysm [Unknown]
